FAERS Safety Report 4672847-8 (Version None)
Quarter: 2005Q2

REPORT INFORMATION
  Report Type: 
  Country: None (occurrence: None)
  Receive Date: 20050524
  Receipt Date: 20050310
  Transmission Date: 20051028
  Serious: Yes (Other)
  Sender: FDA-Public Use
  Company Number: PHFR2005GB01208

PATIENT

DRUGS (3)
  1. CHEMOTHERAPEUTICS,OTHER [Concomitant]
     Indication: BREAST CANCER
     Dates: start: 20040720
  2. EXEMESTANE [Concomitant]
     Indication: BREAST CANCER
     Route: 048
     Dates: start: 20040701
  3. ZOMETA [Suspect]
     Indication: METASTASES TO BONE
     Dosage: 4 MG, QW4
     Route: 042
     Dates: start: 20030901, end: 20050101

REACTIONS (6)
  - BONE INFECTION [None]
  - DENTAL TREATMENT [None]
  - OSTEONECROSIS [None]
  - PAIN IN JAW [None]
  - SWELLING FACE [None]
  - TOOTH EXTRACTION [None]
